FAERS Safety Report 4363724-0 (Version None)
Quarter: 2004Q2

REPORT INFORMATION
  Report Type: 
  Country: None (occurrence: None)
  Receive Date: 20040521
  Receipt Date: 20040521
  Transmission Date: 20050107
  Serious: Yes (Other)
  Sender: FDA-Public Use
  Company Number: None

PATIENT
  Age: 18 Year
  Sex: Male
  Weight: 58.9676 kg

DRUGS (2)
  1. PAXIL [Suspect]
     Indication: DEPRESSION
     Dosage: 1 TABLET PER DAY ORAL
     Route: 048
     Dates: start: 20021105, end: 20040424
  2. PAXIL [Suspect]
     Indication: PANIC DISORDER
     Dosage: 1 TABLET PER DAY ORAL
     Route: 048
     Dates: start: 20021105, end: 20040424

REACTIONS (2)
  - SHOPLIFTING [None]
  - SUICIDAL IDEATION [None]
